FAERS Safety Report 11757169 (Version 2)
Quarter: 2015Q4

REPORT INFORMATION
  Report Type: Spontaneous
  Country: US (occurrence: US)
  Receive Date: 20151120
  Receipt Date: 20151223
  Transmission Date: 20160304
  Serious: No
  Sender: FDA-Public Use
  Company Number: US-009507513-1511USA007230

PATIENT
  Age: 62 Year
  Sex: Male

DRUGS (2)
  1. PREGNYL [Suspect]
     Active Substance: CHORIOGONADOTROPIN ALFA
     Dosage: 0.25 ML, ONCE DAILY
     Route: 058
     Dates: start: 201510, end: 20151014
  2. PREGNYL [Suspect]
     Active Substance: CHORIOGONADOTROPIN ALFA
     Indication: TESTICULAR DISORDER
     Dosage: 0.25 ML, ONCE DAILY
     Route: 058
     Dates: start: 20150929, end: 20151007

REACTIONS (4)
  - Neck pain [Recovering/Resolving]
  - Neck pain [Recovered/Resolved]
  - VIIth nerve paralysis [Recovering/Resolving]
  - VIIth nerve paralysis [Recovered/Resolved]

NARRATIVE: CASE EVENT DATE: 2015
